FAERS Safety Report 13010814 (Version 2)
Quarter: 2020Q2

REPORT INFORMATION
  Report Type: Spontaneous
  Country: US (occurrence: US)
  Receive Date: 20161208
  Receipt Date: 20200428
  Transmission Date: 20200713
  Serious: Yes (Death, Other)
  Sender: FDA-Public Use
  Company Number: US-NOVOPROD-521560

PATIENT
  Age: 65 Year
  Sex: Male
  Weight: 112.9 kg

DRUGS (38)
  1. XARELTO [Concomitant]
     Active Substance: RIVAROXABAN
     Indication: THROMBOSIS
     Dosage: 15 MG, BID
     Route: 048
     Dates: start: 20151226
  2. DEXAMETHASONE. [Concomitant]
     Active Substance: DEXAMETHASONE
     Indication: STOMATITIS
     Dosage: 3.3MG/5ML; 5 ML 3X/DAY AS NEEDED
     Route: 048
     Dates: start: 20151216, end: 20160209
  3. COLACE [Concomitant]
     Active Substance: DOCUSATE SODIUM
     Indication: CONSTIPATION
     Dosage: 100 MG, BID AS NEEDED
     Route: 048
     Dates: start: 20151202, end: 20160208
  4. BENEFIBER [CYAMOPSIS TETRAGONOLOBA GUM] [Concomitant]
     Active Substance: GUAR GUM
     Indication: CONSTIPATION
  5. PROAIR HFA [Concomitant]
     Active Substance: ALBUTEROL SULFATE
     Indication: DYSPNOEA
     Dosage: 2 PUFFS INHALED QID AS NEEDED
  6. METFORMIN [Concomitant]
     Active Substance: METFORMIN HYDROCHLORIDE
     Indication: INSULIN-REQUIRING TYPE 2 DIABETES MELLITUS
     Dosage: 1000 MG, BID
     Route: 048
  7. SYMBICORT [Concomitant]
     Active Substance: BUDESONIDE\FORMOTEROL FUMARATE DIHYDRATE
     Indication: ASTHMA
     Dosage: UNK
     Dates: start: 20151229, end: 20160111
  8. CLOBETASOL [Concomitant]
     Active Substance: CLOBETASOL
     Indication: SKIN DISORDER
     Dosage: APPLY TOPICALLY TO AFFECTED AREA 3 TIMES A DAY
     Route: 061
     Dates: start: 20151216, end: 20160208
  9. SINGULAIR [Concomitant]
     Active Substance: MONTELUKAST SODIUM
     Indication: HYPERSENSITIVITY
     Dosage: UNK
     Dates: start: 20160127, end: 20160208
  10. AZITHROMYCIN ANHYDROUS. [Concomitant]
     Active Substance: AZITHROMYCIN ANHYDROUS
     Indication: INFECTION
     Dosage: UNK
     Dates: start: 20151224
  11. IMODIUM A-D [Concomitant]
     Active Substance: LOPERAMIDE HYDROCHLORIDE
     Indication: CONSTIPATION
     Dosage: 2MG, EVERY 4 HOURS AS NEEDED
     Route: 048
  12. DEXILANT [Concomitant]
     Active Substance: DEXLANSOPRAZOLE
     Dosage: 60 MG, QD
     Route: 048
  13. XARELTO [Concomitant]
     Active Substance: RIVAROXABAN
     Dosage: 20 MG, QD
     Route: 048
     Dates: end: 20160208
  14. TYLENOL [Concomitant]
     Active Substance: ACETAMINOPHEN
     Indication: PAIN
     Dosage: 500MG, 2 TABS EVERY 6 HOURS AS NEEDED
     Route: 048
     Dates: start: 20151120, end: 20160208
  15. METAMUCIL [Concomitant]
     Active Substance: PLANTAGO SEED
     Indication: DECREASED APPETITE
     Dosage: 3.4G/5.2G; 1 DOSE BID PRN
     Route: 048
     Dates: start: 20151202, end: 20160208
  16. IMODIUM [Concomitant]
     Active Substance: LOPERAMIDE HYDROCHLORIDE
     Indication: DIARRHOEA
     Dosage: UNK
     Dates: start: 20151229, end: 20160215
  17. XYZAL [Concomitant]
     Active Substance: LEVOCETIRIZINE DIHYDROCHLORIDE
     Indication: SEASONAL ALLERGY
     Dosage: UNK
     Dates: start: 20160111, end: 20160127
  18. XYZAL [Concomitant]
     Active Substance: LEVOCETIRIZINE DIHYDROCHLORIDE
     Indication: URTICARIA
  19. SINGULAIR [Concomitant]
     Active Substance: MONTELUKAST SODIUM
     Indication: ASTHMA
  20. PROCHLORPERAZINE. [Concomitant]
     Active Substance: PROCHLORPERAZINE
     Indication: NAUSEA
     Dosage: 10 MG EVERY 6 HOURS AS NEEDED
     Route: 048
  21. GLIMEPIRIDE. [Concomitant]
     Active Substance: GLIMEPIRIDE
     Dosage: 4 MG
     Dates: start: 20140620
  22. VICTOZA [Suspect]
     Active Substance: LIRAGLUTIDE
     Indication: INSULIN-REQUIRING TYPE 2 DIABETES MELLITUS
     Dosage: ONCE DAILY
     Route: 058
     Dates: start: 20130926, end: 201507
  23. JANUVIA [Suspect]
     Active Substance: SITAGLIPTIN PHOSPHATE
     Indication: INSULIN-REQUIRING TYPE 2 DIABETES MELLITUS
     Dosage: 100 MG, QD
     Dates: start: 20150810, end: 201510
  24. TESSALON [Concomitant]
     Active Substance: BENZONATATE
     Indication: COUGH
     Dosage: UNK
     Dates: start: 20151229, end: 20160208
  25. OXYCODONE [Concomitant]
     Active Substance: OXYCODONE
     Indication: PAIN
     Dosage: 5 MG EVERY 4 HOURS AS NEEDED
  26. KAZANO [Concomitant]
     Active Substance: ALOGLIPTIN BENZOATE\METFORMIN HYDROCHLORIDE
     Indication: INSULIN-REQUIRING TYPE 2 DIABETES MELLITUS
     Dosage: 12.5/500MG AND THEN INCREASED TO 12.5/1,000MG
  27. CRESTOR [Concomitant]
     Active Substance: ROSUVASTATIN CALCIUM
     Indication: BLOOD CHOLESTEROL INCREASED
     Dosage: 20 MG, QD AT BEDTIME
     Route: 048
     Dates: start: 20151103, end: 20160208
  28. ONDANSETRON [Concomitant]
     Active Substance: ONDANSETRON
     Indication: NAUSEA
     Dosage: 8 MG, TID AS NEEDED
  29. LEVEMIR [Concomitant]
     Active Substance: INSULIN DETEMIR
     Indication: INSULIN-REQUIRING TYPE 2 DIABETES MELLITUS
     Dosage: 65 IU, QD AT BEDTIME
     Route: 058
  30. ADVIL [IBUPROFEN] [Concomitant]
     Active Substance: IBUPROFEN
     Indication: PAIN
     Dosage: UNK
     Dates: start: 20151120, end: 20151231
  31. METAMUCIL [Concomitant]
     Active Substance: PLANTAGO SEED
     Indication: CONSTIPATION
  32. ASPIRIN [ACETYLSALICYLIC ACID] [Concomitant]
     Active Substance: ASPIRIN
     Indication: PAIN
     Dosage: 81 MG, QD
     Route: 048
     Dates: start: 20051103, end: 20160208
  33. ATENOLOL. [Concomitant]
     Active Substance: ATENOLOL
     Dosage: 25 MG, QD
     Route: 048
  34. JARDIANCE [Concomitant]
     Active Substance: EMPAGLIFLOZIN
     Dosage: 25 MG
     Dates: start: 20150526
  35. BENEFIBER [CYAMOPSIS TETRAGONOLOBA GUM] [Concomitant]
     Active Substance: GUAR GUM
     Indication: ROUTINE HEALTH MAINTENANCE
     Dosage: AS NEEDED
     Route: 048
     Dates: start: 20151229, end: 20160208
  36. MULTIVITAMINS [VITAMINS NOS] [Concomitant]
     Active Substance: VITAMINS
     Indication: ROUTINE HEALTH MAINTENANCE
     Dosage: 1 DOSE DAILY
     Dates: start: 20151103, end: 20160208
  37. IMODIUM A-D [Concomitant]
     Active Substance: LOPERAMIDE HYDROCHLORIDE
     Indication: DIARRHOEA
  38. NOVOLOG [Concomitant]
     Active Substance: INSULIN ASPART
     Indication: INSULIN-REQUIRING TYPE 2 DIABETES MELLITUS
     Dosage: TID
     Route: 058

REACTIONS (1)
  - Pancreatic carcinoma metastatic [Fatal]

NARRATIVE: CASE EVENT DATE: 201510
